FAERS Safety Report 24694134 (Version 1)
Quarter: 2024Q4

REPORT INFORMATION
  Report Type: Spontaneous
  Country: FR (occurrence: FR)
  Receive Date: 20241204
  Receipt Date: 20241204
  Transmission Date: 20250114
  Serious: Yes (Hospitalization)
  Sender: CHEPLAPHARM
  Company Number: None

PATIENT
  Age: 49 Year
  Sex: Male
  Weight: 118 kg

DRUGS (14)
  1. ETOPOSIDE PHOSPHATE [Suspect]
     Active Substance: ETOPOSIDE PHOSPHATE
     Indication: Testis cancer recurrent
     Dosage: I.E. 195 MG D1 TO D5 THEN D8 AND D15.(20 MIN)?DAILY DOSE: 100 MILLIGRAM/M?
     Route: 042
     Dates: start: 20241105
  2. ETOPOSIDE PHOSPHATE [Suspect]
     Active Substance: ETOPOSIDE PHOSPHATE
     Indication: Testis cancer recurrent
     Dates: start: 20241107
  3. ETOPOSIDE PHOSPHATE [Suspect]
     Active Substance: ETOPOSIDE PHOSPHATE
     Indication: Testis cancer recurrent
     Dates: start: 20241108
  4. PREDNISOLONE SODIUM METASULFOBENZOATE [Suspect]
     Active Substance: PREDNISOLONE SODIUM METAZOATE
  5. BLEOMYCIN [Concomitant]
     Active Substance: BLEOMYCIN SULFATE
     Dosage: D1
  6. CISPLATIN [Concomitant]
     Active Substance: CISPLATIN
     Dates: start: 20241107
  7. CISPLATIN [Concomitant]
     Active Substance: CISPLATIN
     Dates: start: 20241108
  8. CISPLATIN [Concomitant]
     Active Substance: CISPLATIN
     Dosage: 20 MG/M? I.E. 40 MG D1 TO D5
  9. SERETIDE [Concomitant]
     Active Substance: FLUTICASONE PROPIONATE\SALMETEROL XINAFOATE
  10. VENTOLIN [Concomitant]
     Active Substance: ALBUTEROL SULFATE
     Route: 055
  11. EMEND [Concomitant]
     Active Substance: APREPITANT
  12. ONDANSETRON [Concomitant]
     Active Substance: ONDANSETRON
  13. PRIMPERAN [Concomitant]
     Active Substance: METOCLOPRAMIDE HYDROCHLORIDE
     Dosage: 5 MG
  14. FILGRASTIM [Concomitant]
     Active Substance: FILGRASTIM
     Dosage: 48 MIU, 1 SC INJECTION PER DAY FOR 5 DAYS
     Route: 058

REACTIONS (2)
  - Asthmatic crisis [Recovered/Resolved]
  - Asthenia [Unknown]

NARRATIVE: CASE EVENT DATE: 20241105
